FAERS Safety Report 12831665 (Version 1)
Quarter: 2016Q4

REPORT INFORMATION
  Report Type: Spontaneous
  Country: US (occurrence: US)
  Receive Date: 20161010
  Receipt Date: 20161010
  Transmission Date: 20170207
  Serious: No
  Sender: FDA-Public Use
  Company Number: US-BIOGEN-2016BI00302574

PATIENT
  Sex: Female

DRUGS (1)
  1. TYSABRI [Suspect]
     Active Substance: NATALIZUMAB
     Indication: MULTIPLE SCLEROSIS
     Route: 065
     Dates: start: 20160510

REACTIONS (3)
  - Musculoskeletal pain [Not Recovered/Not Resolved]
  - Neck pain [Not Recovered/Not Resolved]
  - Muscle spasms [Unknown]

NARRATIVE: CASE EVENT DATE: 2016
